FAERS Safety Report 24961003 (Version 2)
Quarter: 2025Q3

REPORT INFORMATION
  Report Type: Spontaneous
  Country: US (occurrence: US)
  Receive Date: 20250212
  Receipt Date: 20250711
  Transmission Date: 20251021
  Serious: Yes (Hospitalization, Other)
  Sender: BRISTOL-MYERS SQUIBB COMPANY
  Company Number: US-BRISTOL-MYERS SQUIBB COMPANY-2025-020546

PATIENT
  Sex: Female

DRUGS (1)
  1. ELIQUIS [Suspect]
     Active Substance: APIXABAN
     Indication: Thrombosis
     Dates: start: 20250201

REACTIONS (5)
  - Influenza [Unknown]
  - Cerebrovascular accident [Unknown]
  - Muscular weakness [Unknown]
  - Decreased appetite [Unknown]
  - Arthropathy [Unknown]

NARRATIVE: CASE EVENT DATE: 20250204
